FAERS Safety Report 10651503 (Version 1)
Quarter: 2014Q4

REPORT INFORMATION
  Report Type: Spontaneous
  Country: US (occurrence: None)
  Receive Date: 20141212
  Receipt Date: 20141212
  Transmission Date: 20150529
  Serious: No
  Sender: FDA-Public Use
  Company Number: None

PATIENT
  Age: 80 Year
  Sex: Female
  Weight: 60.5 kg

DRUGS (4)
  1. OXALIPLATIN. [Suspect]
     Active Substance: OXALIPLATIN
     Dates: start: 20110923
  2. BEVACIZUMAB [Suspect]
     Active Substance: BEVACIZUMAB
     Dates: start: 20110923
  3. FLUOROURACIL. [Suspect]
     Active Substance: FLUOROURACIL
     Dates: start: 20111022
  4. LEUCOVORIN [Suspect]
     Active Substance: LEUCOVORIN
     Dates: start: 20140923

REACTIONS (5)
  - Haematemesis [None]
  - Fatigue [None]
  - Fall [None]
  - Loss of consciousness [None]
  - Myocardial infarction [None]

NARRATIVE: CASE EVENT DATE: 20111022
